FAERS Safety Report 7683529-2 (Version None)
Quarter: 2011Q3

REPORT INFORMATION
  Report Type: 
  Country: None (occurrence: None)
  Receive Date: 20110815
  Receipt Date: 20110805
  Transmission Date: 20111222
  Serious: Yes (Hospitalization)
  Sender: FDA-Public Use
  Company Number: JP-MERCK-1107USA03614

PATIENT
  Age: 56 Year
  Sex: Female

DRUGS (1)
  1. MAXALT [Suspect]
     Indication: MIGRAINE
     Route: 048
     Dates: start: 20090101, end: 20110124

REACTIONS (2)
  - SUBARACHNOID HAEMORRHAGE [None]
  - CEREBRAL VASOCONSTRICTION [None]
